FAERS Safety Report 7373255-1 (Version None)
Quarter: 2011Q1

REPORT INFORMATION
  Report Type: 
  Country: None (occurrence: None)
  Receive Date: 20110324
  Receipt Date: 20110314
  Transmission Date: 20110831
  Serious: Yes (Other)
  Sender: FDA-Public Use
  Company Number: FR-GENENTECH-315176

PATIENT
  Sex: Female
  Weight: 18.7 kg

DRUGS (1)
  1. SOMATROPIN [Suspect]
     Indication: TURNER'S SYNDROME
     Dosage: 0.8 MG, QD
     Route: 058
     Dates: start: 20090528

REACTIONS (1)
  - ADENOIDAL HYPERTROPHY [None]
